FAERS Safety Report 7303663-6 (Version None)
Quarter: 2011Q1

REPORT INFORMATION
  Report Type: 
  Country: None (occurrence: None)
  Receive Date: 20110221
  Receipt Date: 20110216
  Transmission Date: 20110831
  Serious: Yes (Hospitalization)
  Sender: FDA-Public Use
  Company Number: DE-GILEAD-2011-0035993

PATIENT
  Age: 67 Year
  Sex: Male
  Weight: 85 kg

DRUGS (5)
  1. ASS 100 [Concomitant]
  2. FLUVASTATIN [Concomitant]
  3. TRUVADA [Suspect]
     Indication: HIV INFECTION
  4. VIRAMUNE [Concomitant]
  5. PANTOPRAZOLE [Concomitant]

REACTIONS (3)
  - CONFUSIONAL STATE [None]
  - ASTHENIA [None]
  - BLOOD SODIUM DECREASED [None]
